FAERS Safety Report 10203736 (Version 5)
Quarter: 2014Q3

REPORT INFORMATION
  Report Type: Report from Study
  Country: US (occurrence: US)
  Receive Date: 20140529
  Receipt Date: 20140730
  Transmission Date: 20150326
  Serious: Yes (Hospitalization)
  Sender: FDA-Public Use
  Company Number: PHHO2014US007773

PATIENT
  Age: 62 Year
  Sex: Female
  Weight: 98.87 kg

DRUGS (22)
  1. FASLODEX [Suspect]
     Active Substance: FULVESTRANT
     Indication: BREAST CANCER METASTATIC
     Dosage: 500 MG, ONCE IN 4 WEEKS
     Route: 030
     Dates: start: 20140130, end: 20140522
  2. LOSARTAN POTASSSIUM [Concomitant]
     Indication: RAYNAUD^S PHENOMENON
     Dosage: 50 MG, BID
     Route: 048
  3. GABAPENTIN. [Concomitant]
     Active Substance: GABAPENTIN
     Indication: NEUROPATHY PERIPHERAL
     Dosage: 300 MG, TID
     Route: 048
     Dates: start: 201311
  4. ALBUTEROL. [Concomitant]
     Active Substance: ALBUTEROL
     Indication: ASTHMA
     Dosage: 2 DF (PUFFS), PRN
  5. CYMBALTA [Concomitant]
     Active Substance: DULOXETINE HYDROCHLORIDE
     Indication: DEPRESSION
     Dosage: 60 MG, QD
  6. ADVAIR DISKUS [Concomitant]
     Active Substance: FLUTICASONE PROPIONATE\SALMETEROL XINAFOATE
     Indication: ASTHMA
     Dosage: 1 DF (PUFF), BID
     Dates: start: 201304
  7. METOPROLOL [Concomitant]
     Active Substance: METOPROLOL
     Dosage: 75 MG, UNK
     Dates: start: 20140623, end: 20140703
  8. AFINITOR [Suspect]
     Active Substance: EVEROLIMUS
     Indication: BREAST CANCER METASTATIC
     Dosage: 10 MG, QD
     Route: 048
     Dates: start: 20140515
  9. CALCIUM + VITAMIN D [Concomitant]
     Active Substance: CALCIUM\VITAMIN D
     Dosage: UNK
     Dates: start: 201404
  10. ESOMEPRAZOLE MAGNESIUM. [Concomitant]
     Active Substance: ESOMEPRAZOLE MAGNESIUM
     Indication: GASTROOESOPHAGEAL REFLUX DISEASE
     Dosage: 40 MG, BID
     Route: 048
  11. BUMETANIDE. [Concomitant]
     Active Substance: BUMETANIDE
     Indication: HYPERTENSION
     Dosage: 1 MG, QD
     Route: 048
  12. FENTANYL. [Concomitant]
     Active Substance: FENTANYL
     Indication: PAIN
     Dosage: 50 UG, 1 IN 72 H
     Dates: start: 201310
  13. PENTOXYFYLLINE [Concomitant]
     Dosage: 400 MG, TID
     Route: 048
  14. ALLEGRA [Concomitant]
     Active Substance: FEXOFENADINE HYDROCHLORIDE
     Indication: HYPERSENSITIVITY
     Dosage: 180 MG, QD, PRN
     Dates: start: 200508
  15. MORPHINE SULFATE. [Concomitant]
     Active Substance: MORPHINE SULFATE
     Indication: PAIN
     Dosage: 15 MG, Q4H
     Route: 048
     Dates: start: 201306
  16. EVOXAC [Concomitant]
     Active Substance: CEVIMELINE HYDROCHLORIDE
     Dosage: 30 MG, QD
     Route: 048
  17. SINGULAIR [Concomitant]
     Active Substance: MONTELUKAST SODIUM
     Indication: HYPERSENSITIVITY
     Dosage: 1 DF, QD
     Dates: start: 200805
  18. XGEVA [Concomitant]
     Active Substance: DENOSUMAB
     Indication: METASTASES TO BONE
     Dosage: 120 MG, UNK
     Route: 058
     Dates: start: 20140424
  19. TRIAMCINOLONE ACETONIDE. [Concomitant]
     Active Substance: TRIAMCINOLONE ACETONIDE
     Indication: PRURITUS
     Dosage: PRN
     Dates: start: 201210
  20. METOPROLOL [Concomitant]
     Active Substance: METOPROLOL
     Indication: HYPERTENSION
     Dosage: 25 MG, 3 TABS
     Route: 048
     Dates: start: 20140612
  21. AMLODIPINE [Concomitant]
     Active Substance: AMLODIPINE BESYLATE
     Indication: HYPERTENSION
     Dosage: 5 MG, BID
  22. DILTIAZEM [Concomitant]
     Active Substance: DILTIAZEM
     Dosage: 120 MG, QD
     Dates: start: 20140703

REACTIONS (4)
  - Dyspnoea [Recovering/Resolving]
  - Pleural effusion [Unknown]
  - Pericardial effusion [Unknown]
  - Sialoadenitis [Unknown]

NARRATIVE: CASE EVENT DATE: 20140522
